FAERS Safety Report 6489593-0 (Version None)
Quarter: 2009Q4

REPORT INFORMATION
  Report Type: 
  Country: None (occurrence: None)
  Receive Date: 20091207
  Receipt Date: 20091130
  Transmission Date: 20100525
  Serious: Yes (Other)
  Sender: FDA-Public Use
  Company Number: OSCN-PR-0911L-0512

PATIENT
  Age: 53 Year
  Sex: Male

DRUGS (8)
  1. OMNISCAN [Suspect]
     Indication: RENAL FAILURE ACUTE
     Dosage: 30 ML, SINGLE DOSE
     Dates: start: 20050501, end: 20050501
  2. PREDNISONE [Concomitant]
  3. DARBEPOIETIN [Concomitant]
  4. NIFEDIPINE [Concomitant]
  5. RAMIPRIL [Concomitant]
  6. LAMIVUDINE [Concomitant]
  7. TACROLIMUS [Concomitant]
  8. CALCIUM ACETATE [Concomitant]

REACTIONS (2)
  - HAEMODIALYSIS [None]
  - STASIS DERMATITIS [None]
